FAERS Safety Report 7788429-5 (Version None)
Quarter: 2011Q3

REPORT INFORMATION
  Report Type: 
  Country: None (occurrence: None)
  Receive Date: 20110930
  Receipt Date: 20110920
  Transmission Date: 20111222
  Serious: Yes (Death)
  Sender: FDA-Public Use
  Company Number: DK-JNJFOC-20051105629

PATIENT
  Sex: Male
  Weight: 90 kg

DRUGS (3)
  1. REMICADE [Suspect]
     Indication: PSORIASIS
     Dosage: 4 INFUSIONS
     Route: 042
     Dates: start: 20050701, end: 20051007
  2. HYDROCORTISONE [Concomitant]
     Route: 048
     Dates: start: 20050701
  3. METHOTREXATE [Concomitant]
     Route: 048
     Dates: start: 20050610

REACTIONS (1)
  - MYOCARDIAL INFARCTION [None]
